FAERS Safety Report 4800767-4 (Version None)
Quarter: 2005Q4

REPORT INFORMATION
  Report Type: 
  Country: None (occurrence: None)
  Receive Date: 20051017
  Receipt Date: 20051004
  Transmission Date: 20060501
  Serious: Yes (Death, Hospitalization)
  Sender: FDA-Public Use
  Company Number: US-MERCK-0510USA03722

PATIENT
  Age: 83 Year
  Sex: Female
  Weight: 59 kg

DRUGS (16)
  1. HUMULIN [Concomitant]
     Route: 065
  2. ECOTRIN [Concomitant]
     Route: 065
  3. LIPITOR [Concomitant]
     Route: 065
  4. RENAGEL [Concomitant]
     Route: 065
  5. PRILOSEC [Concomitant]
     Route: 065
  6. PHOSLO [Concomitant]
     Route: 065
  7. TRUSOPT [Concomitant]
     Route: 065
  8. HYDROCODONE BITARTRATE + ACETAMINOPHEN [Concomitant]
     Route: 065
  9. WARFARIN [Concomitant]
     Route: 065
  10. SODIUM BICARBONATE [Concomitant]
     Route: 065
  11. NIFEDIPINE [Concomitant]
     Route: 065
  12. METOPROLOL [Concomitant]
     Route: 065
  13. CELEBREX [Concomitant]
     Route: 065
     Dates: end: 20001203
  14. NEURONTIN [Concomitant]
     Route: 065
  15. VIOXX [Suspect]
     Indication: ARTHRITIS
     Route: 048
     Dates: start: 20001204, end: 20010222
  16. DEMADEX [Concomitant]
     Route: 065

REACTIONS (1)
  - MYOCARDIAL INFARCTION [None]
